FAERS Safety Report 9243272 (Version 1)
Quarter: 2013Q2

REPORT INFORMATION
  Report Type: Spontaneous
  Country: US (occurrence: US)
  Receive Date: 20130419
  Receipt Date: 20130419
  Transmission Date: 20140414
  Serious: No
  Sender: FDA-Public Use
  Company Number: US-ASTRAZENECA-2012SE24650

PATIENT
  Age: 59 Year
  Sex: Male

DRUGS (1)
  1. PRILOSEC OTC [Suspect]
     Route: 048

REACTIONS (4)
  - Abdominal pain [Unknown]
  - Nausea [Unknown]
  - Condition aggravated [Unknown]
  - Gastrointestinal ulcer [Unknown]
